FAERS Safety Report 15401660 (Version 1)
Quarter: 2018Q3

REPORT INFORMATION
  Report Type: Spontaneous
  Country: US (occurrence: US)
  Receive Date: 20180914
  Receipt Date: 20180914
  Transmission Date: 20181010
  Serious: Yes (Death, Hospitalization)
  Sender: FDA-Public Use
  Company Number: None

PATIENT
  Age: 73 Year
  Sex: Male

DRUGS (7)
  1. AMLODIPINE [Concomitant]
     Active Substance: AMLODIPINE BESYLATE
  2. PAROXETINE. [Concomitant]
     Active Substance: PAROXETINE
  3. SENSIPAR [Suspect]
     Active Substance: CINACALCET HYDROCHLORIDE
     Route: 048
  4. HUMULIN 70.30 [Concomitant]
  5. VELHPORO [Concomitant]
  6. CARVEDILOL. [Concomitant]
     Active Substance: CARVEDILOL
  7. OMEPRAZOLE. [Concomitant]
     Active Substance: OMEPRAZOLE

REACTIONS (1)
  - Death [None]

NARRATIVE: CASE EVENT DATE: 20180909
